FAERS Safety Report 9361593 (Version 2)
Quarter: 2013Q2

REPORT INFORMATION
  Report Type: Spontaneous
  Country: IT (occurrence: IT)
  Receive Date: 20130621
  Receipt Date: 20130627
  Transmission Date: 20140414
  Serious: Yes (Hospitalization)
  Sender: FDA-Public Use
  Company Number: IT-VERTEX PHARMACEUTICALS INC-2013-007282

PATIENT
  Age: 70 Year
  Sex: Male
  Weight: 67 kg

DRUGS (6)
  1. INCIVO [Suspect]
     Indication: CHRONIC HEPATITIS C
     Dosage: 2250 MG, QD
     Route: 048
     Dates: start: 20130409, end: 20130614
  2. COPEGUS [Suspect]
     Indication: CHRONIC HEPATITIS C
     Dosage: DOSAGE FORM: COATED TABLET
     Route: 048
     Dates: start: 20130409, end: 20130512
  3. COPEGUS [Suspect]
     Dosage: DOSAGE FORM: COATED TABLET
     Route: 048
     Dates: start: 20130513
  4. PEGASYS [Suspect]
     Indication: CHRONIC HEPATITIS C
     Dosage: DOSAGE FORM: SOLUTION FOR INJECTION
     Route: 058
     Dates: start: 20130409, end: 20130614
  5. HYDROCHLOROTHIAZIDE [Concomitant]
     Indication: HYPERTENSION
     Route: 048
  6. ATENOLOL [Concomitant]
     Indication: HYPERTENSION
     Route: 048

REACTIONS (4)
  - Perianal erythema [Recovered/Resolved]
  - Rash generalised [Recovered/Resolved]
  - Haemorrhoids [Recovered/Resolved]
  - Haemoglobin decreased [Recovered/Resolved]
